FAERS Safety Report 13134033 (Version 1)
Quarter: 2017Q1

REPORT INFORMATION
  Report Type: Spontaneous
  Country: US (occurrence: US)
  Receive Date: 20170120
  Receipt Date: 20170120
  Transmission Date: 20170428
  Serious: No
  Sender: FDA-Public Use
  Company Number: US-ASTRAZENECA-2017SE04873

PATIENT
  Age: 68 Year
  Sex: Female

DRUGS (5)
  1. MAXIDA [Concomitant]
  2. LOSARTAN. [Concomitant]
     Active Substance: LOSARTAN
  3. ZOCOR [Concomitant]
     Active Substance: SIMVASTATIN
  4. BYDUREON [Suspect]
     Active Substance: EXENATIDE
     Route: 065
     Dates: start: 20161123, end: 20161228
  5. ASPIRIN. [Concomitant]
     Active Substance: ASPIRIN

REACTIONS (1)
  - Nodule [Unknown]

NARRATIVE: CASE EVENT DATE: 2016
